FAERS Safety Report 11629323 (Version 1)
Quarter: 2015Q4

REPORT INFORMATION
  Report Type: Spontaneous
  Country: US (occurrence: None)
  Receive Date: 20151013
  Receipt Date: 20151013
  Transmission Date: 20160304
  Serious: No
  Sender: FDA-Public Use
  Company Number: None

PATIENT
  Age: 74 Year
  Sex: Female

DRUGS (1)
  1. ZOLPIDEM [Suspect]
     Active Substance: ZOLPIDEM\ZOLPIDEM TARTRATE
     Dates: start: 20151009

REACTIONS (3)
  - Drug effect decreased [None]
  - Poor quality sleep [None]
  - Product quality issue [None]

NARRATIVE: CASE EVENT DATE: 20151009
